FAERS Safety Report 10149320 (Version 1)
Quarter: 2014Q2

REPORT INFORMATION
  Report Type: Spontaneous
  Country: US (occurrence: US)
  Receive Date: 20140502
  Receipt Date: 20140502
  Transmission Date: 20141212
  Serious: Yes (Other)
  Sender: FDA-Public Use
  Company Number: US-RB-065490-14

PATIENT
  Age: 55 Year
  Sex: Female

DRUGS (1)
  1. MUCINEX FAST MAX SEVERE CONGESTION AND COUGH LIQUID [Suspect]
     Indication: PRODUCT USED FOR UNKNOWN INDICATION
     Dosage: 1/2 DOSE ONE TIME
     Route: 048

REACTIONS (3)
  - Swelling face [Recovered/Resolved]
  - Throat tightness [Recovered/Resolved]
  - Hypersensitivity [Recovered/Resolved]
